FAERS Safety Report 14283441 (Version 6)
Quarter: 2018Q3

REPORT INFORMATION
  Report Type: Report from Study
  Country: US (occurrence: US)
  Receive Date: 20171213
  Receipt Date: 20180711
  Transmission Date: 20181010
  Serious: Yes (Other)
  Sender: FDA-Public Use
  Company Number: US-CORCEPT THERAPEUTICS INC.-US-2017CRT001009

PATIENT

DRUGS (6)
  1. KORLYM [Suspect]
     Active Substance: MIFEPRISTONE
     Indication: CUSHING^S SYNDROME
     Dosage: 300 MG, QD
     Route: 048
     Dates: start: 201701, end: 20170308
  2. KORLYM [Suspect]
     Active Substance: MIFEPRISTONE
     Dosage: 600 MG, QD
     Route: 048
     Dates: start: 20170309, end: 201703
  3. KORLYM [Suspect]
     Active Substance: MIFEPRISTONE
     Dosage: 300 MG, QD
     Route: 048
     Dates: end: 201802
  4. KORLYM [Suspect]
     Active Substance: MIFEPRISTONE
     Dosage: 300 MG, QD
     Route: 048
     Dates: start: 201803, end: 201806
  5. KORLYM [Suspect]
     Active Substance: MIFEPRISTONE
     Dosage: 300 MG, QD
     Route: 048
     Dates: start: 201707, end: 201709
  6. KORLYM [Suspect]
     Active Substance: MIFEPRISTONE
     Dosage: 900 MG, UNK
     Route: 048
     Dates: start: 201703, end: 201707

REACTIONS (16)
  - Uterine cancer [Recovering/Resolving]
  - Adenocarcinoma [Unknown]
  - Haemoglobin decreased [Unknown]
  - Vulvovaginal pain [Unknown]
  - Emotional disorder [Unknown]
  - Depressed mood [Unknown]
  - Pulmonary mass [Unknown]
  - Pulmonary fibrosis [Unknown]
  - Blood bilirubin increased [Unknown]
  - Muscle spasms [Unknown]
  - Vaginal haemorrhage [Recovered/Resolved]
  - Sleep disorder [Unknown]
  - Decreased appetite [Unknown]
  - Dysuria [Unknown]
  - Pain [Unknown]
  - Weight decreased [Unknown]

NARRATIVE: CASE EVENT DATE: 2017
